FAERS Safety Report 5123301-0 (Version None)
Quarter: 2006Q4

REPORT INFORMATION
  Report Type: 
  Country: None (occurrence: None)
  Receive Date: 20061005
  Receipt Date: 20060919
  Transmission Date: 20070319
  Serious: Yes (Hospitalization)
  Sender: FDA-Public Use
  Company Number: 230051

PATIENT
  Age: 45 Year
  Sex: Male

DRUGS (2)
  1. RAPTIVA [Suspect]
     Indication: PSORIASIS
     Dosage: 0.142 MG/KG, 1/WEEK, SUBCUTANEOUS
     Route: 058
     Dates: start: 20060804, end: 20060901
  2. ANTIDEPRESSANTS [Concomitant]

REACTIONS (3)
  - DRUG DOSE OMISSION [None]
  - ERYTHEMA [None]
  - RASH PUSTULAR [None]
